FAERS Safety Report 15358352 (Version 1)
Quarter: 2018Q3

REPORT INFORMATION
  Report Type: Spontaneous
  Country: US (occurrence: US)
  Receive Date: 20180830
  Receipt Date: 20180830
  Transmission Date: 20181010
  Serious: No
  Sender: FDA-Public Use
  Company Number: None

PATIENT
  Age: 63 Year
  Sex: Male

DRUGS (1)
  1. STELARA [Suspect]
     Active Substance: USTEKINUMAB
     Dates: start: 20180321, end: 20180830

REACTIONS (6)
  - Inflammation [None]
  - Swelling [None]
  - Erythema [None]
  - Pruritus [None]
  - Arthralgia [None]
  - Dry skin [None]

NARRATIVE: CASE EVENT DATE: 20180802
